FAERS Safety Report 9968610 (Version 1)
Quarter: 2014Q1

REPORT INFORMATION
  Report Type: Report from Study
  Country: US (occurrence: US)
  Receive Date: 20140306
  Receipt Date: 20140306
  Transmission Date: 20141002
  Serious: No
  Sender: FDA-Public Use
  Company Number: US-ABBVIE-13P-163-1143229-00

PATIENT
  Age: 20 Year
  Sex: Male
  Weight: 93.07 kg

DRUGS (5)
  1. HUMIRA [Suspect]
     Indication: CROHN^S DISEASE
     Route: 058
     Dates: start: 201302, end: 201309
  2. HUMIRA [Suspect]
     Route: 058
     Dates: start: 201309
  3. METHOTREXATE [Concomitant]
     Indication: PRODUCT USED FOR UNKNOWN INDICATION
  4. FOLIC ACID [Concomitant]
     Indication: PRODUCT USED FOR UNKNOWN INDICATION
  5. OMEPRAZOLE [Concomitant]
     Indication: PRODUCT USED FOR UNKNOWN INDICATION

REACTIONS (9)
  - Functional gastrointestinal disorder [Not Recovered/Not Resolved]
  - Functional gastrointestinal disorder [Not Recovered/Not Resolved]
  - Intestinal mucosal atrophy [Not Recovered/Not Resolved]
  - Flank pain [Unknown]
  - Condition aggravated [Not Recovered/Not Resolved]
  - Intestinal villi atrophy [Not Recovered/Not Resolved]
  - Red blood cell sedimentation rate increased [Unknown]
  - C-reactive protein increased [Unknown]
  - Crohn^s disease [Not Recovered/Not Resolved]
